FAERS Safety Report 15751565 (Version 1)
Quarter: 2018Q4

REPORT INFORMATION
  Report Type: Spontaneous
  Country: GB (occurrence: GB)
  Receive Date: 20181221
  Receipt Date: 20181221
  Transmission Date: 20190205
  Serious: Yes (Other)
  Sender: FDA-Public Use
  Company Number: GB-SAKK-2018SA387564AA

PATIENT
  Age: 40 Year
  Sex: Male

DRUGS (1)
  1. ALEMTUZUMAB [Suspect]
     Active Substance: ALEMTUZUMAB
     Indication: RELAPSING-REMITTING MULTIPLE SCLEROSIS
     Dosage: UNK
     Route: 041
     Dates: start: 2009, end: 2014

REACTIONS (3)
  - Eye pain [Unknown]
  - Endocrine ophthalmopathy [Unknown]
  - Basedow^s disease [Unknown]
